FAERS Safety Report 5191264-8 (Version None)
Quarter: 2006Q4

REPORT INFORMATION
  Report Type: 
  Country: None (occurrence: None)
  Receive Date: 20061219
  Receipt Date: 20061219
  Transmission Date: 20070319
  Serious: Yes (Other)
  Sender: FDA-Public Use
  Company Number: None

PATIENT
  Sex: Male
  Weight: 49.8957 kg

DRUGS (1)
  1. TOPAMAX [Suspect]
     Indication: DIABETIC NEUROPATHY
     Dosage: 25 MG TID PO
     Route: 048
     Dates: start: 20060828, end: 20061116

REACTIONS (1)
  - DYSGEUSIA [None]
